APPROVED DRUG PRODUCT: MIRABEGRON
Active Ingredient: MIRABEGRON
Strength: 8MG/ML
Dosage Form/Route: FOR SUSPENSION, EXTENDED RELEASE;ORAL
Application: A219323 | Product #001 | TE Code: AB
Applicant: ALKEM LABORATORIES LTD
Approved: Jan 20, 2026 | RLD: No | RS: No | Type: RX